FAERS Safety Report 15986826 (Version 5)
Quarter: 2019Q2

REPORT INFORMATION
  Report Type: Spontaneous
  Country: US (occurrence: US)
  Receive Date: 20190220
  Receipt Date: 20190429
  Transmission Date: 20190711
  Serious: Yes (Other)
  Sender: FDA-Public Use
  Company Number: US-PFIZER INC-2019077493

PATIENT
  Sex: Female

DRUGS (118)
  1. PRILOSEC [Suspect]
     Active Substance: OMEPRAZOLE MAGNESIUM
     Dosage: UNK
     Dates: start: 2008, end: 2019
  2. METRONIDAZOLE. [Concomitant]
     Active Substance: METRONIDAZOLE
     Dosage: UNK
     Dates: start: 2018
  3. BETAMETHASONE. [Concomitant]
     Active Substance: BETAMETHASONE
     Dosage: UNK
     Dates: start: 2015, end: 2018
  4. BALSALAZIDE DISODIUM. [Concomitant]
     Active Substance: BALSALAZIDE DISODIUM
     Indication: COLITIS ULCERATIVE
     Dosage: UNK
     Dates: start: 2009
  5. HYDROCODONE/HOMATROPINE [Concomitant]
     Active Substance: HOMATROPINE METHYLBROMIDE\HYDROCODONE BITARTRATE
     Indication: COUGH
     Dosage: UNK
     Dates: start: 2009
  6. CIPROFLOXACIN. [Concomitant]
     Active Substance: CIPROFLOXACIN
     Dosage: UNK
     Dates: start: 2018
  7. MEPERIDINE [Concomitant]
     Active Substance: MEPERIDINE
     Indication: PAIN
     Dosage: UNK
     Dates: start: 2009
  8. FLUCONAZOLE. [Concomitant]
     Active Substance: FLUCONAZOLE
     Dosage: UNK
     Dates: start: 2014, end: 2017
  9. BENTYL [Concomitant]
     Active Substance: DICYCLOMINE HYDROCHLORIDE
     Indication: IRRITABLE BOWEL SYNDROME
     Dosage: UNK
     Dates: start: 2011
  10. OXYCODONE [Concomitant]
     Active Substance: OXYCODONE
     Dosage: UNK
     Dates: start: 2018
  11. SODIUM BICARBONATE. [Concomitant]
     Active Substance: SODIUM BICARBONATE
     Indication: DYSPEPSIA
     Dosage: UNK
     Dates: start: 2013, end: 2018
  12. CYMBALTA [Concomitant]
     Active Substance: DULOXETINE HYDROCHLORIDE
     Indication: ANXIETY
  13. POLY-IRON [Concomitant]
     Active Substance: IRON
     Indication: ANAEMIA
     Dosage: UNK
     Dates: start: 2013, end: 2014
  14. ELIQUIS [Concomitant]
     Active Substance: APIXABAN
     Indication: THROMBOSIS
     Dosage: UNK
     Dates: start: 2016
  15. TUMS [Concomitant]
     Active Substance: CALCIUM CARBONATE
     Dosage: 200 MG, AS NEEDED
  16. METRONIDAZOLE. [Concomitant]
     Active Substance: METRONIDAZOLE
     Indication: INFECTION
     Dosage: UNK
     Dates: start: 2009, end: 2012
  17. LIDOCAINE. [Concomitant]
     Active Substance: LIDOCAINE
     Indication: PAIN
     Dosage: UNK
     Dates: start: 2011
  18. HYDROXYZINE [Concomitant]
     Active Substance: HYDROXYZINE HYDROCHLORIDE
     Indication: ANXIETY
     Dosage: UNK
     Dates: start: 2009
  19. PENTASA [Concomitant]
     Active Substance: MESALAMINE
     Indication: COLITIS ULCERATIVE
     Dosage: UNK
     Dates: start: 2009
  20. PHENAZOPYRIDINE. [Concomitant]
     Active Substance: PHENAZOPYRIDINE
     Dosage: UNK
     Dates: start: 2014
  21. OXYCODONE [Concomitant]
     Active Substance: OXYCODONE
     Indication: PAIN
     Dosage: UNK
     Dates: start: 2012, end: 2013
  22. ABILIFY [Concomitant]
     Active Substance: ARIPIPRAZOLE
     Indication: DEPRESSION
     Dosage: UNK
     Dates: start: 2013, end: 2015
  23. MAGNESIUM OXIDE. [Concomitant]
     Active Substance: MAGNESIUM OXIDE
     Indication: DYSPEPSIA
     Dosage: UNK
     Dates: start: 2013
  24. VITAMIN D2 [Concomitant]
     Active Substance: ERGOCALCIFEROL
     Indication: SUPPLEMENTATION THERAPY
     Dosage: UNK
     Dates: start: 2013, end: 2016
  25. DIAZEPAM. [Concomitant]
     Active Substance: DIAZEPAM
     Indication: ANXIETY
     Dosage: UNK
     Dates: start: 2013, end: 2015
  26. HYOSCYAMINE. [Concomitant]
     Active Substance: HYOSCYAMINE
     Indication: IRRITABLE BOWEL SYNDROME
     Dosage: UNK
     Dates: start: 2013, end: 2015
  27. PEPCID [Concomitant]
     Active Substance: FAMOTIDINE
     Indication: DYSPEPSIA
     Dosage: UNK
     Dates: start: 2013
  28. PANTOPRAZOLE [Suspect]
     Active Substance: PANTOPRAZOLE
     Dosage: 40 MG, ONCE PER DAY
     Dates: start: 2018
  29. ONDANSETRON [Concomitant]
     Active Substance: ONDANSETRON
     Dosage: UNK
     Dates: start: 2017
  30. HYDROCODONE BITARTRATE AND ACETAMINOPHEN [Concomitant]
     Active Substance: ACETAMINOPHEN\HYDROCODONE BITARTRATE
     Indication: PAIN
     Dosage: UNK
     Dates: start: 2010, end: 2011
  31. KLOR-CON [Concomitant]
     Active Substance: POTASSIUM CHLORIDE
     Indication: BLOOD POTASSIUM DECREASED
     Dosage: UNK
     Dates: start: 2009, end: 2013
  32. AZITHROMYCIN ANHYDROUS. [Concomitant]
     Active Substance: AZITHROMYCIN ANHYDROUS
     Dosage: UNK
     Dates: start: 2012
  33. FOLATE [Concomitant]
     Active Substance: FOLATE SODIUM
     Indication: ANAEMIA
     Dosage: UNK
     Dates: start: 2013
  34. FERREX [Concomitant]
     Active Substance: FERRIC POLYSACCHARIDE COMPLEX
     Indication: ANAEMIA
     Dosage: UNK
     Dates: start: 2013
  35. LIPITOR [Concomitant]
     Active Substance: ATORVASTATIN CALCIUM
     Indication: BLOOD CHOLESTEROL INCREASED
     Dosage: UNK
     Dates: start: 2016
  36. CREON [Concomitant]
     Active Substance: PANCRELIPASE AMYLASE\PANCRELIPASE LIPASE\PANCRELIPASE PROTEASE
     Indication: SUPPLEMENTATION THERAPY
     Dosage: UNK
     Dates: start: 2016, end: 2017
  37. ESOMEPRAZOLE. [Suspect]
     Active Substance: ESOMEPRAZOLE MAGNESIUM
     Indication: GASTROOESOPHAGEAL REFLUX DISEASE
     Dosage: 40 MG, ONCE PER DAY
     Dates: start: 2016
  38. ASACOL [Concomitant]
     Active Substance: MESALAMINE
     Dosage: UNK
     Dates: start: 2012, end: 2014
  39. NOREL SR [Concomitant]
     Active Substance: ACETAMINOPHEN\CHLORPHENIRAMINE MALEATE\PHENYLEPHRINE HYDROCHLORIDE\PHENYLTOLOXAMINE CITRATE
     Indication: HYPERSENSITIVITY
  40. CYCLOBENZAPRINE. [Concomitant]
     Active Substance: CYCLOBENZAPRINE
     Indication: PAIN
     Dosage: UNK
     Dates: start: 2011
  41. TRAMADOL. [Concomitant]
     Active Substance: TRAMADOL
     Indication: PAIN
     Dosage: UNK
     Dates: start: 2011
  42. DIPHENOXYLATE/ATROPINE [Concomitant]
     Active Substance: ATROPINE\DIPHENOXYLATE
     Indication: DIARRHOEA
     Dosage: UNK
     Dates: start: 2012, end: 2018
  43. CETIRIZINE [Concomitant]
     Active Substance: CETIRIZINE HYDROCHLORIDE
     Indication: HYPERSENSITIVITY
     Dosage: UNK
     Dates: start: 2016
  44. NYSTATIN. [Concomitant]
     Active Substance: NYSTATIN
     Indication: FUNGAL INFECTION
     Dosage: UNK
     Dates: start: 2014, end: 2016
  45. CHOLESTYRAMINE. [Concomitant]
     Active Substance: CHOLESTYRAMINE
     Dosage: UNK
     Dates: start: 2016, end: 2017
  46. LEVAQUIN [Concomitant]
     Active Substance: LEVOFLOXACIN
     Indication: INFECTION
     Dosage: UNK
     Dates: start: 2010
  47. FLUOCINONIDE. [Concomitant]
     Active Substance: FLUOCINONIDE
     Indication: STEROID THERAPY
     Dosage: UNK
     Dates: start: 2009
  48. PROMETHAZINE [Concomitant]
     Active Substance: PROMETHAZINE\PROMETHAZINE HYDROCHLORIDE
     Indication: HYPERSENSITIVITY
     Dosage: UNK
     Dates: start: 2009, end: 2017
  49. KLOR-CON [Concomitant]
     Active Substance: POTASSIUM CHLORIDE
     Dosage: UNK
     Dates: start: 2017
  50. PENTASA [Concomitant]
     Active Substance: MESALAMINE
     Dosage: UNK
     Dates: start: 2012, end: 2014
  51. BUTALBITAL, ACETAMINOPHEN, AND CAFFEINE [Concomitant]
     Active Substance: ACETAMINOPHEN\BUTALBITAL\CAFFEINE
     Indication: HEADACHE
     Dosage: UNK
     Dates: start: 2010
  52. NOREL SR [Concomitant]
     Active Substance: ACETAMINOPHEN\CHLORPHENIRAMINE MALEATE\PHENYLEPHRINE HYDROCHLORIDE\PHENYLTOLOXAMINE CITRATE
     Indication: INFLUENZA
     Dosage: UNK
     Dates: start: 2010
  53. AMARYL [Concomitant]
     Active Substance: GLIMEPIRIDE
     Indication: TYPE 2 DIABETES MELLITUS
     Dosage: UNK
     Dates: start: 2012
  54. PREDNISONE. [Concomitant]
     Active Substance: PREDNISONE
     Indication: HYPERSENSITIVITY
     Dosage: UNK
     Dates: start: 2013, end: 2018
  55. PREDNISONE. [Concomitant]
     Active Substance: PREDNISONE
     Indication: SKIN IRRITATION
  56. CEPHALEXINE [Concomitant]
     Active Substance: CEPHALEXIN
     Indication: INFECTION
     Dosage: UNK
     Dates: start: 2009
  57. PEPCID [Concomitant]
     Active Substance: FAMOTIDINE
     Indication: GASTROOESOPHAGEAL REFLUX DISEASE
  58. VOLTAREN [Concomitant]
     Active Substance: DICLOFENAC SODIUM
     Indication: PAIN
     Dosage: UNK
     Dates: start: 2018
  59. PREVALITE [Concomitant]
     Active Substance: CHOLESTYRAMINE
     Indication: BLOOD CHOLESTEROL INCREASED
     Dosage: UNK
     Dates: start: 2018
  60. DILTIAZEM. [Concomitant]
     Active Substance: DILTIAZEM
     Indication: HYPERTENSION
     Dosage: UNK
     Dates: start: 2015
  61. PROAIR HFA [Concomitant]
     Active Substance: ALBUTEROL SULFATE
     Indication: ASTHMA
     Dosage: UNK
     Dates: start: 2015
  62. GABAPENTIN. [Concomitant]
     Active Substance: GABAPENTIN
     Indication: NEURALGIA
     Dosage: UNK
     Dates: start: 2015, end: 2016
  63. MORPHINE SULFATE. [Concomitant]
     Active Substance: MORPHINE SULFATE
     Indication: PAIN MANAGEMENT
     Dosage: UNK
     Dates: start: 2013, end: 2017
  64. HYDROCODONE BITARTRATE AND ACETAMINOPHEN [Concomitant]
     Active Substance: ACETAMINOPHEN\HYDROCODONE BITARTRATE
     Dosage: UNK
     Dates: start: 2016, end: 2018
  65. CIPROFLOXACIN. [Concomitant]
     Active Substance: CIPROFLOXACIN
     Indication: INFECTION
     Dosage: UNK
     Dates: start: 2009, end: 2014
  66. BETA-VAL [Concomitant]
     Active Substance: BETAMETHASONE VALERATE
     Indication: SKIN IRRITATION
     Dosage: UNK
     Dates: start: 2009
  67. SINGULAIR [Concomitant]
     Active Substance: MONTELUKAST SODIUM
     Indication: HYPERSENSITIVITY
  68. NITROFURANTOIN MONOHYDRATE MACROCRYSTALS [Concomitant]
     Active Substance: NITROFURANTOIN\NITROFURANTOIN MONOHYDRATE
     Dosage: UNK
     Dates: start: 2013, end: 2015
  69. EXPECTUSS [Concomitant]
     Indication: COUGH
     Dosage: UNK
     Dates: start: 2011
  70. TRIAMCINOLONE [Concomitant]
     Active Substance: TRIAMCINOLONE
     Dosage: UNK
     Dates: start: 2018
  71. INDOMETHACIN. [Concomitant]
     Active Substance: INDOMETHACIN
     Indication: PAIN
     Dosage: UNK
     Dates: start: 2011, end: 2012
  72. LORAZEPAM. [Concomitant]
     Active Substance: LORAZEPAM
     Indication: ANXIETY
     Dosage: UNK
     Dates: start: 2013
  73. CEPHALEXINE [Concomitant]
     Active Substance: CEPHALEXIN
     Dosage: UNK
     Dates: start: 2015
  74. MUPIROCIN. [Concomitant]
     Active Substance: MUPIROCIN
     Indication: SKIN INFECTION
     Dosage: UNK
     Dates: start: 2017
  75. NOVOLOG [Concomitant]
     Active Substance: INSULIN ASPART
     Indication: DIABETES MELLITUS
     Dosage: UNK
     Dates: start: 2014, end: 2018
  76. HYDROMORPHONE [Concomitant]
     Active Substance: HYDROMORPHONE
     Indication: PAIN
     Dosage: UNK
     Dates: start: 2015, end: 2017
  77. PROTONIX [Suspect]
     Active Substance: PANTOPRAZOLE SODIUM
     Indication: GASTROOESOPHAGEAL REFLUX DISEASE
     Dosage: UNK
     Dates: start: 2008, end: 2019
  78. PANTOPRAZOLE [Suspect]
     Active Substance: PANTOPRAZOLE
     Indication: GASTROOESOPHAGEAL REFLUX DISEASE
     Dosage: 40 MG, 1X/DAY
     Dates: start: 2013, end: 2015
  79. ONDANSETRON [Concomitant]
     Active Substance: ONDANSETRON
     Indication: NAUSEA
     Dosage: UNK
     Dates: start: 2010, end: 2012
  80. METRONIDAZOLE. [Concomitant]
     Active Substance: METRONIDAZOLE
     Dosage: UNK
     Dates: start: 2014
  81. FLUTICASONE. [Concomitant]
     Active Substance: FLUTICASONE
     Indication: ASTHMA
     Dosage: UNK
     Dates: start: 2009, end: 2019
  82. BETAMETHASONE. [Concomitant]
     Active Substance: BETAMETHASONE
     Indication: INFECTION
     Dosage: UNK
     Dates: start: 2010, end: 2013
  83. SINGULAIR [Concomitant]
     Active Substance: MONTELUKAST SODIUM
     Indication: ASTHMA
     Dosage: UNK
     Dates: start: 2009
  84. ASACOL [Concomitant]
     Active Substance: MESALAMINE
     Indication: COLITIS ULCERATIVE
     Dosage: UNK
     Dates: start: 2009
  85. PRINIVIL [Concomitant]
     Active Substance: LISINOPRIL
     Indication: HYPERTENSION
     Dosage: UNK
     Dates: start: 2011, end: 2012
  86. PRINIVIL [Concomitant]
     Active Substance: LISINOPRIL
     Dosage: UNK
     Dates: start: 2016, end: 2018
  87. CALCIPOTRIENE. [Concomitant]
     Active Substance: CALCIPOTRIENE
     Indication: PSORIASIS
     Dosage: UNK
     Dates: start: 2011
  88. CLOBETASOL [Concomitant]
     Active Substance: CLOBETASOL
     Indication: PSORIASIS
  89. TRIAMCINOLONE [Concomitant]
     Active Substance: TRIAMCINOLONE
     Indication: ECZEMA
     Dosage: UNK
     Dates: start: 2011, end: 2012
  90. ERYTHROMYCIN BENZOYL PEROXIDE [Concomitant]
     Indication: ACNE
     Dosage: UNK
     Dates: start: 2012
  91. MUCINEX [Concomitant]
     Active Substance: GUAIFENESIN
     Indication: NASAL CONGESTION
     Dosage: UNK
     Dates: start: 2013
  92. CVS FIBER LAXATIVE [Concomitant]
     Indication: CONSTIPATION
     Dosage: UNK
     Dates: start: 2013
  93. CYMBALTA [Concomitant]
     Active Substance: DULOXETINE HYDROCHLORIDE
     Indication: DEPRESSION
     Dosage: UNK
     Dates: start: 2013, end: 2015
  94. CLOTRIMAZOLE AND BETAMETHASONE [Concomitant]
     Active Substance: BETAMETHASONE\CLOTRIMAZOLE
     Indication: FUNGAL INFECTION
     Dosage: UNK
     Dates: start: 2011
  95. CHOLESTYRAMINE. [Concomitant]
     Active Substance: CHOLESTYRAMINE
     Indication: BLOOD CHOLESTEROL
     Dosage: UNK
     Dates: start: 2014
  96. NEXIUM [Suspect]
     Active Substance: ESOMEPRAZOLE MAGNESIUM
     Indication: GASTROOESOPHAGEAL REFLUX DISEASE
     Dosage: UNK
     Dates: start: 2008, end: 2019
  97. NEXIUM [Suspect]
     Active Substance: ESOMEPRAZOLE MAGNESIUM
     Dosage: 40 MG, ONCE PER DAY
     Dates: start: 2009, end: 2012
  98. PREVACID [Suspect]
     Active Substance: LANSOPRAZOLE
     Dosage: 30 MG, UNK
     Dates: start: 2010, end: 2014
  99. OMEPRAZOLE. [Suspect]
     Active Substance: OMEPRAZOLE
     Indication: GASTROOESOPHAGEAL REFLUX DISEASE
     Dosage: 40 MG, ONCE DAILY
     Dates: start: 2014
  100. FENTANYL. [Concomitant]
     Active Substance: FENTANYL
     Indication: PAIN
     Dosage: UNK
     Dates: start: 2013, end: 2017
  101. AZITHROMYCIN ANHYDROUS. [Concomitant]
     Active Substance: AZITHROMYCIN ANHYDROUS
     Indication: INFECTION
     Dosage: UNK
     Dates: start: 2009
  102. AZITHROMYCIN ANHYDROUS. [Concomitant]
     Active Substance: AZITHROMYCIN ANHYDROUS
     Dosage: UNK
     Dates: start: 2014
  103. PHENAZOPYRIDINE. [Concomitant]
     Active Substance: PHENAZOPYRIDINE
     Indication: URINARY TRACT INFECTION
     Dosage: UNK
     Dates: start: 2009, end: 2010
  104. FLUCONAZOLE. [Concomitant]
     Active Substance: FLUCONAZOLE
     Indication: FUNGAL INFECTION
     Dosage: UNK
     Dates: start: 2009, end: 2012
  105. NITROFURANTOIN MONOHYDRATE MACROCRYSTALS [Concomitant]
     Active Substance: NITROFURANTOIN\NITROFURANTOIN MONOHYDRATE
     Indication: URINARY TRACT INFECTION
     Dosage: UNK
     Dates: start: 2010
  106. SULFAMETHOXAZOLE/TRIMETHOPRIM [Concomitant]
     Indication: INFECTION
     Dosage: UNK
     Dates: start: 2011, end: 2014
  107. CLOBETASOL [Concomitant]
     Active Substance: CLOBETASOL
     Indication: ECZEMA
     Dosage: UNK
     Dates: start: 2011
  108. AMOXICILLIN. [Concomitant]
     Active Substance: AMOXICILLIN
     Indication: INFECTION
     Dosage: UNK
     Dates: start: 2013
  109. EPIFOAM [Concomitant]
     Active Substance: HYDROCORTISONE ACETATE\PRAMOXINE HYDROCHLORIDE
     Indication: SKIN IRRITATION
     Dosage: UNK
     Dates: start: 2013
  110. LEVEMIR [Concomitant]
     Active Substance: INSULIN DETEMIR
     Indication: DIABETES MELLITUS
     Dosage: UNK
     Dates: start: 2014, end: 2019
  111. ZENPEP [Concomitant]
     Active Substance: PANCRELIPASE AMYLASE\PANCRELIPASE LIPASE\PANCRELIPASE PROTEASE
     Indication: DYSPEPSIA
     Dosage: UNK
     Dates: start: 2018
  112. ZANTAC [Concomitant]
     Active Substance: RANITIDINE HYDROCHLORIDE
     Indication: DYSPEPSIA
     Dosage: UNK
     Dates: start: 2016
  113. ZANTAC [Concomitant]
     Active Substance: RANITIDINE HYDROCHLORIDE
     Indication: GASTROOESOPHAGEAL REFLUX DISEASE
  114. AQUAPHOR [WHITE SOFT PARAFFIN] [Concomitant]
     Indication: SKIN IRRITATION
     Dosage: UNK
     Dates: start: 2014
  115. GABAPENTIN. [Concomitant]
     Active Substance: GABAPENTIN
     Dosage: UNK
     Dates: start: 2018
  116. FIBERCON [Concomitant]
     Active Substance: CALCIUM POLYCARBOPHIL
     Dosage: 625 MG, AS NEEDED
  117. PROTONIX [Suspect]
     Active Substance: PANTOPRAZOLE SODIUM
     Dosage: 40 MG, UNK
     Dates: start: 2014, end: 2018
  118. PREVACID [Suspect]
     Active Substance: LANSOPRAZOLE
     Indication: GASTROOESOPHAGEAL REFLUX DISEASE
     Dosage: UNK
     Dates: start: 2008, end: 2019

REACTIONS (2)
  - Chronic kidney disease [Not Recovered/Not Resolved]
  - Acute kidney injury [Unknown]

NARRATIVE: CASE EVENT DATE: 2013
